FAERS Safety Report 5917487-5 (Version None)
Quarter: 2008Q4

REPORT INFORMATION
  Report Type: 
  Country: None (occurrence: None)
  Receive Date: 20081009
  Receipt Date: 20080924
  Transmission Date: 20090506
  Serious: Yes (Other)
  Sender: FDA-Public Use
  Company Number: 2008S1017424

PATIENT
  Age: 20 Year
  Sex: Female

DRUGS (1)
  1. AZATHIOPRINE [Suspect]
     Indication: CROHN'S DISEASE
     Dosage: 125 MG; DAILY

REACTIONS (7)
  - COLITIS [None]
  - CONDITION AGGRAVATED [None]
  - CRYPTOSPORIDIOSIS INFECTION [None]
  - DEHYDRATION [None]
  - DIARRHOEA [None]
  - NEUTROPHILIA [None]
  - TACHYCARDIA [None]
